FAERS Safety Report 18915281 (Version 1)
Quarter: 2021Q1

REPORT INFORMATION
  Report Type: Spontaneous
  Country: GB (occurrence: GB)
  Receive Date: 20210219
  Receipt Date: 20210219
  Transmission Date: 20210420
  Serious: Yes (Other)
  Sender: FDA-Public Use
  Company Number: GB-ACCORD-217517

PATIENT
  Age: 36 Year
  Sex: Male
  Weight: 77 kg

DRUGS (4)
  1. OMEGA?3 FISH OIL [Concomitant]
     Active Substance: FISH OIL\OMEGA-3 FATTY ACIDS
  2. SAINSBURYS A?Z MULTIVITAMINS AND MINERALS [Concomitant]
  3. ACCORD HEALTHCARE FINASTERIDE [Suspect]
     Active Substance: FINASTERIDE
     Indication: ALOPECIA
     Dosage: ONE DAILY
     Route: 048
     Dates: start: 20201201, end: 20210110
  4. ZINC OXIDE. [Concomitant]
     Active Substance: ZINC OXIDE

REACTIONS (1)
  - Hepatic enzyme increased [Not Recovered/Not Resolved]
